FAERS Safety Report 24316248 (Version 2)
Quarter: 2024Q3

REPORT INFORMATION
  Report Type: Report from Study
  Country: BR (occurrence: BR)
  Receive Date: 20240913
  Receipt Date: 20240924
  Transmission Date: 20241017
  Serious: Yes (Death, Life-Threatening, Hospitalization, Other)
  Sender: BAXTER
  Company Number: BR-BAXTER-2024BAX019850

PATIENT
  Age: 68 Year
  Sex: Female
  Weight: 68.4 kg

DRUGS (26)
  1. CYCLOPHOSPHAMIDE [Suspect]
     Active Substance: CYCLOPHOSPHAMIDE
     Indication: Diffuse large B-cell lymphoma stage III
     Dosage: 1305 MG, EVERY 3 WEEKS
     Route: 042
     Dates: start: 20231024, end: 20240206
  2. DOXORUBICIN [Suspect]
     Active Substance: DOXORUBICIN
     Indication: Diffuse large B-cell lymphoma stage III
     Dosage: 87 MG, EVERY 3 WEEKS
     Route: 042
     Dates: start: 20231024, end: 20240206
  3. VINCRISTINE [Suspect]
     Active Substance: VINCRISTINE
     Indication: Diffuse large B-cell lymphoma stage III
     Dosage: 1 MG, EVERY 3 WEEKS
     Route: 042
     Dates: start: 20231024, end: 20240206
  4. PREDNISONE [Suspect]
     Active Substance: PREDNISONE
     Indication: Diffuse large B-cell lymphoma stage III
     Dosage: 100 MG DAILY C1-6, DAY 1-5, EVERY 1 DAYS
     Route: 048
     Dates: start: 20231024, end: 20240210
  5. RITUXIMAB [Suspect]
     Active Substance: RITUXIMAB
     Indication: Diffuse large B-cell lymphoma stage III
     Dosage: 649 MG, EVERY 3 WEEKS
     Route: 042
     Dates: start: 20231024, end: 20240227
  6. EPCORITAMAB [Suspect]
     Active Substance: EPCORITAMAB
     Indication: Diffuse large B-cell lymphoma stage III
     Dosage: (DRUG NOT ADMINISTERED)
     Route: 065
  7. ALLOPURINOL [Concomitant]
     Active Substance: ALLOPURINOL
     Indication: Prophylaxis
     Dosage: 300 MG
     Route: 065
     Dates: start: 20231005
  8. ENTECAVIR [Concomitant]
     Active Substance: ENTECAVIR
     Indication: Antiviral prophylaxis
     Dosage: 0.5 MG, EVERY 1 DAYS
     Route: 065
     Dates: start: 20231005
  9. OMEPRAZOLE [Concomitant]
     Active Substance: OMEPRAZOLE
     Indication: Gastrooesophageal reflux prophylaxis
     Dosage: 20 MG, EVERY 1 DAYS
     Route: 065
     Dates: start: 20231005
  10. BACTRIM [Concomitant]
     Active Substance: SULFAMETHOXAZOLE\TRIMETHOPRIM
     Indication: Antifungal prophylaxis
     Dosage: 800/160 MG, 3/WEEKS
     Route: 065
     Dates: start: 20231023
  11. ACYCLOVIR [Concomitant]
     Active Substance: ACYCLOVIR
     Indication: Antiviral prophylaxis
     Dosage: 400 MG, 3/DAYS
     Route: 065
     Dates: start: 20231023
  12. LACTULONA [Concomitant]
     Indication: Constipation
     Dosage: 40 G, EVERY 1 DAYS
     Route: 065
     Dates: start: 20231107
  13. ROSUVASTATIN [Concomitant]
     Active Substance: ROSUVASTATIN\ROSUVASTATIN CALCIUM
     Indication: Dyslipidaemia
     Dosage: 40 MG, EVERY 1 DAYS, THERAPY START DATE: 1993
     Route: 065
  14. EZETIMIBE [Concomitant]
     Active Substance: EZETIMIBE
     Indication: Dyslipidaemia
     Dosage: 210 MG, EVERY 1 DAYS, THERAPY START DATE: MAR-2022
     Route: 065
  15. SERTRALINE [Concomitant]
     Active Substance: SERTRALINE HYDROCHLORIDE
     Indication: Depression
     Dosage: 150 MG, EVERY 1 DAYS, THERAPY START DATE: 2018
     Route: 065
  16. ASPIRIN [Concomitant]
     Active Substance: ASPIRIN
     Indication: Peripheral arterial occlusive disease
     Dosage: 100 MG, EVERY 1 DAYS, THERAPY START DATE: 2018
     Route: 065
  17. BROMOPRIDE [Concomitant]
     Active Substance: BROMOPRIDE
     Indication: Prophylaxis
     Dosage: 10 MG, 3/DAYS
     Route: 065
     Dates: start: 20231031
  18. HYDROXYZINE [Concomitant]
     Active Substance: HYDROXYZINE HYDROCHLORIDE
     Indication: Pruritus
     Dosage: 25 MG, EVERY 1 DAYS
     Route: 065
     Dates: start: 20231104
  19. BISACODYL [Concomitant]
     Active Substance: BISACODYL
     Indication: Constipation
     Dosage: 5 MG, EVERY 1 DAYS
     Route: 065
     Dates: start: 20231121
  20. ZOLPIDEM [Concomitant]
     Active Substance: ZOLPIDEM TARTRATE
     Indication: Prophylaxis
     Dosage: 10 MG, EVERY 1 DAYS
     Route: 065
     Dates: start: 20240123
  21. PREGABALIN [Concomitant]
     Active Substance: PREGABALIN
     Indication: Neuropathy peripheral
     Dosage: 150 MG, EVERY 1 DAYS
     Route: 065
     Dates: start: 20240227
  22. PIPERACILLIN SODIUM\TAZOBACTAM SODIUM [Concomitant]
     Active Substance: PIPERACILLIN SODIUM\TAZOBACTAM SODIUM
     Indication: Pulmonary sepsis
     Dosage: 4.5 MG, EVERY 6 HOURS
     Route: 065
     Dates: start: 20240326
  23. NISTATIN [Concomitant]
     Active Substance: NYSTATIN
     Indication: Candida infection
     Dosage: 10000 IU/L, EVERY 6 HOURS
     Route: 065
     Dates: start: 20240403
  24. FLUCONAZOLE [Concomitant]
     Active Substance: FLUCONAZOLE
     Indication: Candida infection
     Dosage: 400 MG, EVERY 1 DAYS
     Route: 065
     Dates: start: 20240403
  25. GANCICLOVIR [Concomitant]
     Active Substance: GANCICLOVIR
     Indication: Cytomegalovirus infection
     Dosage: 340 MG, 2/DAYS
     Route: 065
     Dates: start: 20240411
  26. AMIODARONE [Concomitant]
     Active Substance: AMIODARONE
     Indication: Atrial fibrillation
     Dosage: 900 MG, EVERY 1 DAYS
     Route: 065
     Dates: start: 20240406

REACTIONS (2)
  - Pulmonary sepsis [Fatal]
  - Pulmonary sepsis [Recovered/Resolved]

NARRATIVE: CASE EVENT DATE: 20240424
